FAERS Safety Report 18344191 (Version 2)
Quarter: 2020Q4

REPORT INFORMATION
  Report Type: Spontaneous
  Country: US (occurrence: US)
  Receive Date: 20201005
  Receipt Date: 20201107
  Transmission Date: 20210114
  Serious: No
  Sender: FDA-Public Use
  Company Number: US-CELGENEUS-USA-20200907346

PATIENT
  Sex: Female
  Weight: 63.56 kg

DRUGS (2)
  1. REVLIMID [Suspect]
     Active Substance: LENALIDOMIDE
     Indication: PLASMA CELL MYELOMA
     Dosage: 25 MILLIGRAM
     Route: 048
     Dates: start: 201902
  2. REVLIMID [Suspect]
     Active Substance: LENALIDOMIDE
     Dosage: 10 MILLIGRAM
     Route: 048
     Dates: start: 202002

REACTIONS (6)
  - Insomnia [Unknown]
  - Dyspepsia [Unknown]
  - Discomfort [Not Recovered/Not Resolved]
  - Back pain [Unknown]
  - Stress fracture [Unknown]
  - Diarrhoea [Not Recovered/Not Resolved]
